FAERS Safety Report 7476175-7 (Version None)
Quarter: 2011Q2

REPORT INFORMATION
  Report Type: 
  Country: None (occurrence: None)
  Receive Date: 20110512
  Receipt Date: 20110509
  Transmission Date: 20111010
  Serious: Yes (Other)
  Sender: FDA-Public Use
  Company Number: TR-PFIZER INC-2011099535

PATIENT
  Age: 76 Year
  Sex: Female
  Weight: 105 kg

DRUGS (3)
  1. THEOPHYLLINE [Suspect]
     Indication: CHRONIC OBSTRUCTIVE PULMONARY DISEASE
     Dosage: UNK
     Route: 042
     Dates: start: 20110412, end: 20110413
  2. CEFOPERAZONE SODIUM [Suspect]
     Indication: ANTIBIOTIC THERAPY
     Dosage: 2 G, 2X/DAY
     Route: 042
     Dates: start: 20110408
  3. LASIX [Concomitant]
     Dosage: UNK
     Route: 042

REACTIONS (4)
  - LIP SWELLING [None]
  - EYELID OEDEMA [None]
  - ERYTHEMA [None]
  - DYSPNOEA [None]
